FAERS Safety Report 16070322 (Version 1)
Quarter: 2019Q1

REPORT INFORMATION
  Report Type: Spontaneous
  Country: US (occurrence: US)
  Receive Date: 20190314
  Receipt Date: 20190314
  Transmission Date: 20190418
  Serious: Yes (Other)
  Sender: FDA-Public Use
  Company Number: US-GLAXOSMITHKLINE-US2019045313

PATIENT
  Sex: Female

DRUGS (1)
  1. BENLYSTA [Suspect]
     Active Substance: BELIMUMAB
     Indication: SYSTEMIC LUPUS ERYTHEMATOSUS
     Dosage: UNK UNK, CYC
     Route: 042
     Dates: start: 20160920

REACTIONS (9)
  - Arthralgia [Unknown]
  - Feeling abnormal [Unknown]
  - Product dose omission [Unknown]
  - Swelling [Unknown]
  - Fatigue [Unknown]
  - Pleurisy [Unknown]
  - Muscular weakness [Unknown]
  - Neuropathy peripheral [Unknown]
  - Asthenia [Unknown]
